FAERS Safety Report 20303813 (Version 1)
Quarter: 2022Q1

REPORT INFORMATION
  Report Type: Spontaneous
  Country: US (occurrence: None)
  Receive Date: 20220106
  Receipt Date: 20220106
  Transmission Date: 20220423
  Serious: No
  Sender: FDA-Public Use
  Company Number: 2021A859901

PATIENT
  Age: 927 Month
  Sex: Male
  Weight: 81.2 kg

DRUGS (1)
  1. BREZTRI [Suspect]
     Active Substance: BUDESONIDE\FORMOTEROL\GLYCOPYRROLATE
     Indication: Chronic obstructive pulmonary disease
     Dosage: 160/9/4.8 MCGS TWO PUFFS TWICE DAILY
     Route: 055
     Dates: start: 2021

REACTIONS (4)
  - Dyspnoea [Unknown]
  - Product dose omission issue [Unknown]
  - Device malfunction [Unknown]
  - Product confusion [Unknown]

NARRATIVE: CASE EVENT DATE: 20211101
